FAERS Safety Report 8481250-4 (Version None)
Quarter: 2012Q3

REPORT INFORMATION
  Report Type: 
  Country: None (occurrence: None)
  Receive Date: 20120702
  Receipt Date: 20120620
  Transmission Date: 20120928
  Serious: Yes (Hospitalization)
  Sender: FDA-Public Use
  Company Number: GB-NOVOPROD-353711

PATIENT
  Age: 78 Year
  Sex: Male
  Weight: 75.3 kg

DRUGS (1)
  1. VICTOZA [Suspect]
     Indication: TYPE 2 DIABETES MELLITUS

REACTIONS (1)
  - ORTHOSTATIC HYPOTENSION [None]
